FAERS Safety Report 20608846 (Version 1)
Quarter: 2022Q1

REPORT INFORMATION
  Report Type: Spontaneous
  Country: IT (occurrence: None)
  Receive Date: 20220317
  Receipt Date: 20220317
  Transmission Date: 20220424
  Serious: Yes (Hospitalization)
  Sender: FDA-Public Use
  Company Number: 2022A105532

PATIENT
  Age: 51 Year
  Sex: Male

DRUGS (2)
  1. QUETIAPINE FUMARATE [Suspect]
     Active Substance: QUETIAPINE FUMARATE
     Dosage: 50.0DF ONCE/SINGLE ADMINISTRATION
     Route: 065
     Dates: start: 20220117, end: 20220117
  2. RIVOTRIL [Suspect]
     Active Substance: CLONAZEPAM
     Dosage: 20.0MG ONCE/SINGLE ADMINISTRATION
     Route: 065
     Dates: start: 20220117, end: 20220117

REACTIONS (5)
  - Drug abuse [Recovered/Resolved]
  - Bradyphrenia [Recovered/Resolved]
  - Dysarthria [Recovered/Resolved]
  - Bradykinesia [Recovered/Resolved]
  - Confusional state [Recovered/Resolved]

NARRATIVE: CASE EVENT DATE: 20220117
